FAERS Safety Report 24818816 (Version 1)
Quarter: 2025Q1

REPORT INFORMATION
  Report Type: Spontaneous
  Country: US (occurrence: US)
  Receive Date: 20250108
  Receipt Date: 20250108
  Transmission Date: 20250409
  Serious: Yes (Hospitalization)
  Sender: MERCK
  Company Number: US-002147023-NVSC2019US063401

PATIENT
  Age: 81 Year
  Sex: Male
  Weight: 75.3 kg

DRUGS (18)
  1. KEYTRUDA [Suspect]
     Active Substance: PEMBROLIZUMAB
     Indication: Non-small cell lung cancer
     Route: 042
     Dates: start: 20191009, end: 20191009
  2. CARBOPLATIN [Concomitant]
     Active Substance: CARBOPLATIN
     Indication: Non-small cell lung cancer
  3. PEMETREXED [Concomitant]
     Active Substance: PEMETREXED
     Indication: Non-small cell lung cancer
  4. FINASTERIDE [Concomitant]
     Active Substance: FINASTERIDE
  5. TAMSULOSIN [Concomitant]
     Active Substance: TAMSULOSIN
  6. ONDANSETRON [Concomitant]
     Active Substance: ONDANSETRON
  7. CODEINE SULFATE [Concomitant]
     Active Substance: CODEINE SULFATE
  8. HYDROCORTISONE [Concomitant]
     Active Substance: HYDROCORTISONE
  9. CANNABIS SATIVA SUBSP. INDICA TOP [Concomitant]
     Active Substance: CANNABIS SATIVA SUBSP. INDICA TOP
  10. ATORVASTATIN [Concomitant]
     Active Substance: ATORVASTATIN
  11. LEXAPRO [Concomitant]
     Active Substance: ESCITALOPRAM OXALATE
  12. TRAZODONE [Concomitant]
     Active Substance: TRAZODONE HYDROCHLORIDE
  13. LORAZEPAM [Concomitant]
     Active Substance: LORAZEPAM
  14. TESSALON [Concomitant]
     Active Substance: BENZONATATE
  15. FOLIC ACID [Concomitant]
     Active Substance: FOLIC ACID
  16. VITAMIN B12 [Concomitant]
     Active Substance: CYANOCOBALAMIN
  17. DOCUSATE SODIUM [Concomitant]
     Active Substance: DOCUSATE SODIUM
  18. SODIUM CHLORIDE [Concomitant]
     Active Substance: SODIUM CHLORIDE

REACTIONS (3)
  - Asthenia [Not Recovered/Not Resolved]
  - Chest pain [Not Recovered/Not Resolved]
  - Klebsiella urinary tract infection [Not Recovered/Not Resolved]

NARRATIVE: CASE EVENT DATE: 20191208
